FAERS Safety Report 9146344 (Version 1)
Quarter: 2013Q1

REPORT INFORMATION
  Report Type: Spontaneous
  Country: US (occurrence: None)
  Receive Date: 20130214
  Receipt Date: 20130214
  Transmission Date: 20140127
  Serious: Yes (Death)
  Sender: FDA-Public Use
  Company Number: 2013020068

PATIENT
  Age: 43 Year
  Sex: Male

DRUGS (3)
  1. CARISOPRODOL (CARISOPRODOL) [Suspect]
     Indication: COMPLETED SUICIDE
     Route: 048
  2. MEPROBAMATE (MEPROBAMATE) [Suspect]
     Indication: COMPLETED SUICIDE
  3. ETHANOL (ETHANOL) (UNKNOWN) (ETHANOL) [Suspect]
     Indication: COMPLETED SUICIDE
     Route: 048

REACTIONS (1)
  - Completed suicide [None]
